FAERS Safety Report 23939629 (Version 1)
Quarter: 2024Q2

REPORT INFORMATION
  Report Type: Report from Study
  Country: US (occurrence: US)
  Receive Date: 20240605
  Receipt Date: 20240605
  Transmission Date: 20240716
  Serious: Yes (Hospitalization, Other)
  Sender: FDA-Public Use
  Company Number: US-JNJFOC-20240587316

PATIENT
  Sex: Female

DRUGS (2)
  1. SPRAVATO [Suspect]
     Active Substance: ESKETAMINE
     Indication: Depression
     Dosage: ^56 MG, TOTAL OF 4 DOSES^
     Dates: start: 20221031, end: 20221110
  2. SPRAVATO [Suspect]
     Active Substance: ESKETAMINE
     Dosage: ^84 MG, TOTAL OF 90 DOSES^
     Dates: start: 20221115, end: 20240522

REACTIONS (6)
  - Hospitalisation [Unknown]
  - Thoracic operation [Unknown]
  - Thrombosis [Unknown]
  - Injury [Unknown]
  - Procedural complication [Unknown]
  - Malaise [Unknown]

NARRATIVE: CASE EVENT DATE: 20240101
